FAERS Safety Report 4477816-9 (Version None)
Quarter: 2004Q3

REPORT INFORMATION
  Report Type: 
  Country: None (occurrence: None)
  Receive Date: 20040923
  Receipt Date: 20040806
  Transmission Date: 20050211
  Serious: No
  Sender: FDA-Public Use
  Company Number: USA040874251

PATIENT
  Age: 87 Year
  Sex: Female
  Weight: 53 kg

DRUGS (8)
  1. FORTEO [Suspect]
     Indication: OSTEOPOROSIS
     Dosage: 20 UG/1 DAY
     Dates: start: 20040708
  2. CALCIUM W/MAGNESIUM/VITAMIN D [Concomitant]
  3. MICARDIS [Concomitant]
  4. NAMENDA (MEMANTINE HYDROCHLORIDE) [Concomitant]
  5. ARICEPT [Concomitant]
  6. REMERON [Concomitant]
  7. PRAVACHOL [Concomitant]
  8. AZMACORT [Concomitant]

REACTIONS (6)
  - ASTHENIA [None]
  - BLOOD PRESSURE INCREASED [None]
  - DIZZINESS [None]
  - FATIGUE [None]
  - HEART RATE INCREASED [None]
  - VISION BLURRED [None]
